FAERS Safety Report 10143512 (Version 1)
Quarter: 2014Q2

REPORT INFORMATION
  Report Type: Spontaneous
  Country: US (occurrence: US)
  Receive Date: 20140430
  Receipt Date: 20140430
  Transmission Date: 20141212
  Serious: No
  Sender: FDA-Public Use
  Company Number: US-PFIZER INC-2014114278

PATIENT
  Age: 85 Year
  Sex: 0

DRUGS (9)
  1. SKELAXIN [Suspect]
     Dosage: UNK
  2. MORPHINE SULFATE [Suspect]
     Dosage: UNK
  3. METHYLDOPA [Suspect]
     Dosage: UNK
  4. CALCITONIN [Suspect]
     Dosage: UNK
  5. ZYRTEC [Suspect]
     Dosage: UNK
  6. CECLOR [Suspect]
     Dosage: UNK
  7. ANAPROX [Suspect]
     Dosage: UNK
  8. AUGMENTIN [Suspect]
     Dosage: UNK
  9. AVELOX [Suspect]
     Dosage: UNK

REACTIONS (1)
  - Drug hypersensitivity [Unknown]
